FAERS Safety Report 12831520 (Version 2)
Quarter: 2017Q1

REPORT INFORMATION
  Report Type: Spontaneous
  Country: JP (occurrence: JP)
  Receive Date: 20161009
  Receipt Date: 20170316
  Transmission Date: 20170428
  Serious: No
  Sender: FDA-Public Use
  Company Number: PHJP2016JP028426

PATIENT
  Sex: Female

DRUGS (2)
  1. AFINITOR [Suspect]
     Active Substance: EVEROLIMUS
     Indication: FOETAL EXPOSURE DURING PREGNANCY
     Dosage: MATERNAL DOSE:10 MG QD (ORAL)
     Route: 064
     Dates: start: 201310
  2. AFINITOR [Suspect]
     Active Substance: EVEROLIMUS
     Dosage: MATERNAL DOSE:5 MG QD (ORAL)
     Route: 064

REACTIONS (1)
  - Foetal exposure during pregnancy [Unknown]

NARRATIVE: CASE EVENT DATE: 201605
